FAERS Safety Report 7112241-3 (Version None)
Quarter: 2010Q4

REPORT INFORMATION
  Report Type: 
  Country: None (occurrence: None)
  Receive Date: 20101119
  Receipt Date: 20100421
  Transmission Date: 20110411
  Serious: No
  Sender: FDA-Public Use
  Company Number: A0856094A

PATIENT
  Age: 74 Year
  Sex: Male

DRUGS (10)
  1. AVODART [Suspect]
     Dosage: .5MG PER DAY
     Route: 048
     Dates: start: 20100201
  2. SIMVASTATIN [Concomitant]
  3. CARDIZEM [Concomitant]
  4. DAPSONE [Concomitant]
  5. ADVAIR DISKUS 100/50 [Concomitant]
  6. ASPIRIN [Concomitant]
  7. GLUCOSAMINE CHONDROITIN [Concomitant]
  8. CENTRUM [Concomitant]
  9. FOLIC ACID [Concomitant]
  10. CHROMIUM PICOLINATE [Concomitant]

REACTIONS (3)
  - DRUG INEFFECTIVE [None]
  - INCONTINENCE [None]
  - MIDDLE INSOMNIA [None]
